FAERS Safety Report 15415711 (Version 1)
Quarter: 2018Q3

REPORT INFORMATION
  Report Type: Report from Study
  Country: None (occurrence: US)
  Receive Date: 20180922
  Receipt Date: 20180922
  Transmission Date: 20181010
  Serious: Yes (Other)
  Sender: FDA-Public Use
  Company Number: US-ABBVIE-18K-163-2459269-00

PATIENT
  Sex: Female

DRUGS (2)
  1. HUMIRA [Suspect]
     Active Substance: ADALIMUMAB
     Indication: HIDRADENITIS
     Route: 058
  2. HUMIRA [Suspect]
     Active Substance: ADALIMUMAB
     Route: 058

REACTIONS (6)
  - Blood cholesterol increased [Unknown]
  - Hidradenitis [Recovering/Resolving]
  - Neuropathy peripheral [Unknown]
  - Renal disorder [Unknown]
  - Blindness [Unknown]
  - Diabetes mellitus [Unknown]
